FAERS Safety Report 25052314 (Version 2)
Quarter: 2025Q2

REPORT INFORMATION
  Report Type: Spontaneous
  Country: TR (occurrence: TR)
  Receive Date: 20250307
  Receipt Date: 20250422
  Transmission Date: 20250716
  Serious: Yes (Other)
  Sender: PFIZER
  Company Number: TR-PFIZER INC-PV202500027108

PATIENT
  Age: 64 Year
  Sex: Male

DRUGS (1)
  1. ELREXFIO [Suspect]
     Active Substance: ELRANATAMAB-BCMM
     Indication: Plasma cell myeloma refractory

REACTIONS (2)
  - Blindness [Unknown]
  - Cytomegalovirus chorioretinitis [Unknown]
